FAERS Safety Report 8190582-9 (Version None)
Quarter: 2012Q1

REPORT INFORMATION
  Report Type: 
  Country: None (occurrence: None)
  Receive Date: 20120307
  Receipt Date: 20120229
  Transmission Date: 20120608
  Serious: Yes (Hospitalization)
  Sender: FDA-Public Use
  Company Number: FR-ROCHE-1046080

PATIENT
  Age: 62 Year
  Sex: Male

DRUGS (4)
  1. ATROVENT [Concomitant]
  2. XOLAIR [Suspect]
     Indication: ASTHMA
     Route: 065
     Dates: start: 20100101
  3. BRICANYL [Concomitant]
  4. SYMBICORT [Concomitant]

REACTIONS (1)
  - MYOCARDIAL INFARCTION [None]
